FAERS Safety Report 12464029 (Version 1)
Quarter: 2016Q2

REPORT INFORMATION
  Report Type: Spontaneous
  Country: None (occurrence: None)
  Receive Date: 20160613
  Receipt Date: 20160613
  Transmission Date: 20160815
  Serious: Yes (Other)
  Sender: FDA-Public Use
  Company Number: None

PATIENT
  Age: 32 Year
  Sex: Female
  Weight: 65.77 kg

DRUGS (1)
  1. MIRVASO [Suspect]
     Active Substance: BRIMONIDINE TARTRATE
     Indication: ROSACEA
     Dosage: ONCE A DAY, APPLIED TO A SURFACE, USUALLY THE SKIN
     Route: 061
     Dates: start: 20160212, end: 20160425

REACTIONS (5)
  - Inflammation [None]
  - Dermatitis allergic [None]
  - Skin injury [None]
  - Rosacea [None]
  - Skin infection [None]

NARRATIVE: CASE EVENT DATE: 20160421
